FAERS Safety Report 5504506-3 (Version None)
Quarter: 2007Q4

REPORT INFORMATION
  Report Type: 
  Country: None (occurrence: None)
  Receive Date: 20071031
  Receipt Date: 20071024
  Transmission Date: 20080405
  Serious: Yes (Life-Threatening)
  Sender: FDA-Public Use
  Company Number: 2007-166560-NL

PATIENT
  Sex: Female

DRUGS (5)
  1. NUVARING [Suspect]
     Indication: CONTRACEPTION
     Dosage: DF
     Route: 067
     Dates: start: 20050101
  2. CARBAMAZEPINE [Concomitant]
  3. AMITRIPTYLINE HCL [Concomitant]
  4. ACECLOFENAC [Concomitant]
  5. CEFALIV [Concomitant]

REACTIONS (3)
  - BRAIN NEOPLASM [None]
  - BREAST PAIN [None]
  - TRIGEMINAL NERVE DISORDER [None]
